FAERS Safety Report 17803638 (Version 1)
Quarter: 2020Q2

REPORT INFORMATION
  Report Type: Report from Study
  Country: BR (occurrence: BR)
  Receive Date: 20200519
  Receipt Date: 20200519
  Transmission Date: 20200714
  Serious: Yes (Death, Other)
  Sender: FDA-Public Use
  Company Number: BR-TAKEDA-2020TUS022705

PATIENT
  Sex: Female

DRUGS (6)
  1. GRANULOKINE [Concomitant]
     Active Substance: FILGRASTIM
     Indication: ANAEMIA
  2. ROSUVASTATIN. [Concomitant]
     Active Substance: ROSUVASTATIN
     Indication: BLOOD CHOLESTEROL INCREASED
     Dosage: UNK
  3. VEDOLIZUMAB [Suspect]
     Active Substance: VEDOLIZUMAB
     Indication: CROHN^S DISEASE
     Dosage: 300 MILLIGRAM
     Route: 042
     Dates: start: 20200229
  4. BENICAR [Concomitant]
     Active Substance: OLMESARTAN MEDOXOMIL
     Indication: HYPERTENSION
     Dosage: UNK UNK, QD
     Route: 048
  5. CONCOR [Concomitant]
     Active Substance: BISOPROLOL FUMARATE
     Indication: HYPERTENSION
     Dosage: UNK UNK, QD
     Route: 048
  6. GRANULOKINE [Concomitant]
     Active Substance: FILGRASTIM
     Indication: DECREASED IMMUNE RESPONSIVENESS
     Dosage: UNK

REACTIONS (3)
  - Thrombosis [Fatal]
  - Peripheral swelling [Fatal]
  - Embolism [Fatal]
